FAERS Safety Report 5382772-5 (Version None)
Quarter: 2007Q3

REPORT INFORMATION
  Report Type: 
  Country: None (occurrence: None)
  Receive Date: 20070705
  Receipt Date: 20070618
  Transmission Date: 20080115
  Serious: Yes (Life-Threatening, Other)
  Sender: FDA-Public Use
  Company Number: VER_00064_2007

PATIENT
  Sex: Female
  Weight: 58.9676 kg

DRUGS (2)
  1. EPINEPHRINE [Suspect]
     Indication: LIP SWELLING
     Dosage: (INTRAMUSCULAR)
     Route: 030
     Dates: start: 20061201
  2. EPINEPHRINE [Suspect]
     Indication: SWOLLEN TONGUE
     Dosage: (INTRAMUSCULAR)
     Route: 030
     Dates: start: 20061201

REACTIONS (2)
  - DEVICE FAILURE [None]
  - PHARMACEUTICAL PRODUCT COMPLAINT [None]
